FAERS Safety Report 7631881-6 (Version None)
Quarter: 2011Q3

REPORT INFORMATION
  Report Type: 
  Country: None (occurrence: None)
  Receive Date: 20110725
  Receipt Date: 20110513
  Transmission Date: 20111222
  Serious: No
  Sender: FDA-Public Use
  Company Number: US-BRISTOL-MYERS SQUIBB COMPANY-15708423

PATIENT
  Age: 64 Year
  Sex: Female
  Weight: 127 kg

DRUGS (3)
  1. COUMADIN [Suspect]
  2. PLAVIX [Interacting]
  3. OMEPRAZOLE [Interacting]

REACTIONS (1)
  - DRUG INTERACTION [None]
